FAERS Safety Report 8443413-3 (Version None)
Quarter: 2012Q2

REPORT INFORMATION
  Report Type: 
  Country: None (occurrence: None)
  Receive Date: 20120612
  Receipt Date: 20120612
  Transmission Date: 20120825
  Serious: No
  Sender: FDA-Public Use
  Company Number: None

PATIENT
  Sex: Female
  Weight: 56.6996 kg

DRUGS (1)
  1. IPRATROPIUM BROMIDE [Suspect]
     Indication: LUNG DISORDER
     Dosage: ONCE A DAY ORAL
     Route: 048

REACTIONS (1)
  - HEADACHE [None]
